FAERS Safety Report 8742181 (Version 3)
Quarter: 2012Q4

REPORT INFORMATION
  Report Type: 
  Country: US (occurrence: US)
  Receive Date: 20120824
  Receipt Date: 20121113
  Transmission Date: 20130627
  Serious: Yes (Death, Hospitalization, Other)
  Sender: FDA-Public Use
  Company Number: PHHY2012US072366

PATIENT
  Age: 11 Month
  Sex: Male
  Weight: 10.9 kg

DRUGS (1)
  1. LOTREL [Suspect]
     Dosage: 9 DF (10 to 45mg of amlo and 40 to 180mg of bena)

REACTIONS (16)
  - Circulatory collapse [Fatal]
  - Overdose [Unknown]
  - Vomiting [Unknown]
  - Cardiac arrest [Unknown]
  - Respiration abnormal [Unknown]
  - Respiratory rate increased [Unknown]
  - Blood glucose increased [Unknown]
  - Asphyxia [Unknown]
  - Lethargy [Unknown]
  - Cyanosis [Unknown]
  - Condition aggravated [Unknown]
  - Bradycardia [Unknown]
  - Tachycardia [Unknown]
  - Blood pressure decreased [Unknown]
  - Unresponsive to stimuli [Unknown]
  - Drug administered to patient of inappropriate age [Unknown]
